FAERS Safety Report 7679112-5 (Version None)
Quarter: 2011Q3

REPORT INFORMATION
  Report Type: 
  Country: None (occurrence: None)
  Receive Date: 20110812
  Receipt Date: 20110802
  Transmission Date: 20111222
  Serious: Yes (Hospitalization)
  Sender: FDA-Public Use
  Company Number: IT-SHIRE-SPV1-2011-00794

PATIENT
  Sex: Male
  Weight: 37 kg

DRUGS (5)
  1. MELATONINA [Concomitant]
     Indication: SLEEP DISORDER
     Dosage: 30 MG, 1X/DAY:QD
  2. PHENYTOIN SODIUM [Concomitant]
     Indication: EPILEPSY
     Dosage: 50 MG, 3X/DAY:TID
     Route: 048
  3. ELAPRASE [Suspect]
     Indication: MUCOPOLYSACCHARIDOSIS II
     Dosage: UNK, UNKNOWN
     Route: 041
     Dates: start: 20061027, end: 20110512
  4. TOPIRAMATO [Concomitant]
     Indication: EPILEPSY
     Dosage: 100 MG, 3X/DAY:TID
     Route: 048
  5. DIAZEPAM [Concomitant]
     Indication: EPILEPSY
     Dosage: 5 GTT, 3X/DAY:TID
     Route: 048

REACTIONS (6)
  - RESPIRATORY DISTRESS [None]
  - URTICARIA [None]
  - BRONCHOSPASM [None]
  - INFUSION RELATED REACTION [None]
  - OXYGEN SATURATION DECREASED [None]
  - CONVULSION [None]
